FAERS Safety Report 6029328-9 (Version None)
Quarter: 2009Q1

REPORT INFORMATION
  Report Type: 
  Country: None (occurrence: None)
  Receive Date: 20090102
  Receipt Date: 20081222
  Transmission Date: 20090719
  Serious: Yes (Hospitalization, Disabling)
  Sender: FDA-Public Use
  Company Number: 1-17152231

PATIENT
  Age: 52 Year
  Sex: Male

DRUGS (7)
  1. CARVEDILOL [Suspect]
     Dosage: 6.23 MG, TWICE DAILY, ORAL
     Route: 048
  2. SPIRONOLACTONE [Suspect]
     Dosage: 25 MG, 3 TIMES PER WEEK, ORAL
     Route: 048
  3. FUROSEMIDE [Suspect]
     Dosage: 80 MG ONCE DAILY, ORAL
     Route: 048
  4. LISINOPRIL [Suspect]
     Dosage: 20 MG ONCE DAILY, ORAL
     Route: 048
  5. DEXAMETHASONE [Suspect]
     Dosage: 5 MG TWICE DAILY, ORAL
     Route: 048
  6. LIDOCAINE [Suspect]
     Indication: ORAL PAIN
     Dosage: TOPICAL
     Route: 061
  7. IBUPROFEN [Suspect]
     Indication: HEADACHE
     Dosage: 800 MG AS NEEDED, ORAL
     Route: 048

REACTIONS (9)
  - COMA [None]
  - CONJUNCTIVAL SCAR [None]
  - ORAL DISORDER [None]
  - SEPSIS [None]
  - SKIN DEPIGMENTATION [None]
  - SPEECH DISORDER [None]
  - SYMBLEPHARON [None]
  - TOXIC EPIDERMAL NECROLYSIS [None]
  - VISUAL ACUITY REDUCED [None]
